FAERS Safety Report 4622477-9 (Version None)
Quarter: 2005Q1

REPORT INFORMATION
  Report Type: 
  Country: None (occurrence: None)
  Receive Date: 20050324
  Receipt Date: 20050324
  Transmission Date: 20050727
  Serious: Yes (Other)
  Sender: FDA-Public Use
  Company Number: None

PATIENT
  Age: 23 Year
  Sex: Female

DRUGS (2)
  1. MURINE EAR WAX REMOVAL SYSTEM (CARBAMIDE PEROXIDE  6.5%)  + BULB SYRIN [Suspect]
     Dosage: 10 MG DROPS IN RIGHT EAR [ONLY ONCE]
     Dates: start: 20030414
  2. MURINE EAR WAX REMOVAL SYSTEM (CARBAMIDE PEROXIDE  6.5%)  + BULB SYRIN [Suspect]

REACTIONS (3)
  - CERUMEN IMPACTION [None]
  - EAR PAIN [None]
  - TREATMENT NONCOMPLIANCE [None]
